FAERS Safety Report 7623245-6 (Version None)
Quarter: 2011Q3

REPORT INFORMATION
  Report Type: 
  Country: None (occurrence: None)
  Receive Date: 20110720
  Receipt Date: 20110708
  Transmission Date: 20111222
  Serious: Yes (Other)
  Sender: FDA-Public Use
  Company Number: US-JNJFOC-20110704261

PATIENT
  Sex: Female

DRUGS (6)
  1. NEXIUM [Concomitant]
     Route: 048
     Dates: start: 20110407
  2. FOLIC ACID [Concomitant]
     Route: 048
     Dates: start: 20110609
  3. REMICADE [Suspect]
     Indication: CROHN'S DISEASE
     Route: 042
     Dates: start: 20090827
  4. VITAMIN D [Concomitant]
     Dosage: 50,000 UNITS
     Route: 048
     Dates: start: 20110304
  5. RIFAXIMIN [Concomitant]
     Route: 048
     Dates: start: 20110408
  6. DIPHENHYDRAMINE HCL [Concomitant]
     Indication: PREMEDICATION
     Route: 042

REACTIONS (2)
  - INFUSION RELATED REACTION [None]
  - ANAPHYLACTIC REACTION [None]
